FAERS Safety Report 4864134-X (Version None)
Quarter: 2005Q4

REPORT INFORMATION
  Report Type: 
  Country: None (occurrence: None)
  Receive Date: 20051222
  Receipt Date: 20051215
  Transmission Date: 20060501
  Serious: Yes (Hospitalization)
  Sender: FDA-Public Use
  Company Number: SE-GLAXOSMITHKLINE-B0403921A

PATIENT
  Age: 71 Year
  Sex: Male
  Weight: 93.9 kg

DRUGS (5)
  1. ROSIGLITAZONE [Suspect]
     Dosage: 4MG PER DAY
     Route: 048
     Dates: start: 20030304
  2. METFORMIN [Concomitant]
     Dosage: 1000MG PER DAY
     Route: 048
     Dates: start: 19970101
  3. LINATIL [Concomitant]
     Indication: HYPERTENSION
     Dosage: 20MG PER DAY
     Route: 048
     Dates: start: 19900101
  4. CRESTOR [Concomitant]
     Dosage: 20MG PER DAY
     Route: 048
     Dates: start: 20030924
  5. IMPUGAN [Concomitant]
     Dosage: 40MG PER DAY
     Route: 048
     Dates: start: 20050228

REACTIONS (1)
  - DYSPNOEA [None]
